FAERS Safety Report 6452970-8 (Version None)
Quarter: 2009Q4

REPORT INFORMATION
  Report Type: 
  Country: None (occurrence: None)
  Receive Date: 20091124
  Receipt Date: 20091113
  Transmission Date: 20100525
  Serious: Yes (Hospitalization, Disabling)
  Sender: FDA-Public Use
  Company Number: PHHY2009JP50177

PATIENT
  Age: 70 Year
  Sex: Male

DRUGS (3)
  1. AREDIA [Suspect]
     Indication: METASTASES TO BONE
     Route: 042
  2. ZOMETA [Suspect]
     Indication: METASTASES TO BONE
     Dosage: 4MG PER ADMINISTRATION
     Route: 042
  3. DOCETAXEL [Concomitant]
     Indication: NEOPLASM MALIGNANT

REACTIONS (2)
  - OSTEONECROSIS [None]
  - TOOTHACHE [None]
